FAERS Safety Report 8608104 (Version 3)
Quarter: 2014Q1

REPORT INFORMATION
  Report Type: Spontaneous
  Country: US (occurrence: US)
  Receive Date: 20120611
  Receipt Date: 20140114
  Transmission Date: 20141002
  Serious: Yes (Disabling, Other)
  Sender: FDA-Public Use
  Company Number: US-ASTRAZENECA-2012SE35336

PATIENT
  Age: 65 Year
  Sex: Male
  Weight: 109.3 kg

DRUGS (20)
  1. NEXIUM [Suspect]
     Route: 048
     Dates: start: 2001, end: 2012
  2. NEXIUM [Suspect]
     Route: 048
     Dates: start: 20071105
  3. PRILOSEC [Suspect]
     Route: 048
  4. TUMS [Concomitant]
     Dates: start: 1981
  5. ALKA SELTZER [Concomitant]
     Dates: start: 1985, end: 1988
  6. ROLAIDS [Concomitant]
     Dates: start: 1995, end: 2002
  7. GAVISCON [Concomitant]
     Dates: start: 1977, end: 1979
  8. METOPROLOL [Concomitant]
  9. VAPROXEN [Concomitant]
  10. DIOVAN HTC [Concomitant]
  11. DIOVAN HTC [Concomitant]
  12. DIOVAN HTC [Concomitant]
     Dosage: 80/12.5 DAILY
     Dates: start: 20080307
  13. LISINOPRIL [Concomitant]
  14. ZYPREXA [Concomitant]
  15. ACCUPRIL [Concomitant]
  16. NAPROXEN SODIUM [Concomitant]
  17. ASPIRIN [Concomitant]
  18. FELODIPINE [Concomitant]
     Dates: start: 20071105
  19. TORADOL [Concomitant]
  20. ULTRAM [Concomitant]

REACTIONS (8)
  - Limb injury [Unknown]
  - Tibia fracture [Unknown]
  - Osteoporosis [Unknown]
  - Multiple fractures [Unknown]
  - Calcium deficiency [Unknown]
  - Androgen deficiency [Unknown]
  - Stress fracture [Unknown]
  - Depression [Unknown]
